FAERS Safety Report 5926123-3 (Version None)
Quarter: 2008Q4

REPORT INFORMATION
  Report Type: 
  Country: None (occurrence: None)
  Receive Date: 20081016
  Receipt Date: 20081006
  Transmission Date: 20090506
  Serious: Yes (Disabling)
  Sender: FDA-Public Use
  Company Number: ADR2242008

PATIENT
  Age: 82 Year
  Sex: Male

DRUGS (5)
  1. RAMIPRIL [Suspect]
     Indication: HYPERTENSION
     Dosage: 5 MG ORAL
     Route: 048
     Dates: start: 20080801, end: 20080901
  2. AMIODARONE HYDROCHLORIDE [Concomitant]
  3. FUROSEMIDE [Concomitant]
  4. PANTOPRAZOLE SODIUM SESQUIHYDRATE TABLETS [Concomitant]
  5. SIMVASTATIN [Concomitant]

REACTIONS (5)
  - ANAEMIA [None]
  - FACE OEDEMA [None]
  - OEDEMA PERIPHERAL [None]
  - PRODUCT QUALITY ISSUE [None]
  - RENAL DISORDER [None]
